FAERS Safety Report 5040629-3 (Version None)
Quarter: 2006Q2

REPORT INFORMATION
  Report Type: 
  Country: None (occurrence: None)
  Receive Date: 20060628
  Receipt Date: 20060613
  Transmission Date: 20061013
  Serious: Yes (Other)
  Sender: FDA-Public Use
  Company Number: 2006001229

PATIENT
  Age: 67 Year
  Sex: Male

DRUGS (2)
  1. TRACEVA [Suspect]
     Indication: LUNG NEOPLASM MALIGNANT
     Dosage: 100 MG (QS), ORAL
     Route: 048
     Dates: start: 20050101, end: 20060530
  2. PHENYTOIN SODIUM [Concomitant]

REACTIONS (1)
  - FACE OEDEMA [None]
